FAERS Safety Report 7407720-5 (Version None)
Quarter: 2011Q2

REPORT INFORMATION
  Report Type: 
  Country: None (occurrence: None)
  Receive Date: 20110408
  Receipt Date: 20110408
  Transmission Date: 20111010
  Serious: Yes (Death, Life-Threatening, Hospitalization, Disabling, Congenital Anomaly, Other)
  Sender: FDA-Public Use
  Company Number: None

PATIENT
  Age: 43 Year
  Sex: Female
  Weight: 55.3388 kg

DRUGS (3)
  1. FENTANYL [Suspect]
     Indication: PAIN
     Dosage: .75 MCG. 1 PATCH EVERY 48-72HRS TRANSDERMAL
     Route: 062
     Dates: start: 20020818, end: 20110407
  2. FENTANYL [Suspect]
     Indication: INTERVERTEBRAL DISC DEGENERATION
     Dosage: .75 MCG. 1 PATCH EVERY 48-72HRS TRANSDERMAL
     Route: 062
     Dates: start: 20020818, end: 20110407
  3. FENTANYL [Suspect]
     Indication: ARTHRITIS
     Dosage: .75 MCG. 1 PATCH EVERY 48-72HRS TRANSDERMAL
     Route: 062
     Dates: start: 20020818, end: 20110407

REACTIONS (1)
  - CONVULSION [None]
